FAERS Safety Report 10269963 (Version 2)
Quarter: 2014Q2

REPORT INFORMATION
  Report Type: Spontaneous
  Country: US (occurrence: None)
  Receive Date: 20140625
  Receipt Date: 20140630
  Transmission Date: 20141212
  Serious: Yes (Hospitalization)
  Sender: FDA-Public Use
  Company Number: FK201402443

PATIENT
  Age: 71 Year
  Sex: Male

DRUGS (8)
  1. DOXORUBICIN [Suspect]
     Indication: DIFFUSE LARGE B-CELL LYMPHOMA STAGE IV
  2. CYCLOPHOSPHAMIDE [Suspect]
     Indication: DIFFUSE LARGE B-CELL LYMPHOMA STAGE IV
     Dosage: 6 CYCLES
  3. VINCRISTINE (VINCRISTINE) (VINCRISTINE) [Suspect]
     Indication: DIFFUSE LARGE B-CELL LYMPHOMA STAGE IV
     Dosage: 6 CYCLES?
  4. PREDNISONE (PREDNISONE) (PREDNISONE) [Suspect]
     Indication: DIFFUSE LARGE B-CELL LYMPHOMA STAGE IV
     Dosage: 6 CYCLES
  5. ROSUVASTATIN (ROSUVASTATIN) [Concomitant]
  6. ASPIRIN (ACETYLSALICYLIC ACID) [Concomitant]
  7. FISH OIL (FISH OIL) [Concomitant]
  8. MULTIVITAMINS (MULTIVITAMINS) [Concomitant]

REACTIONS (1)
  - T-cell lymphoma [None]
